FAERS Safety Report 8447019-1 (Version None)
Quarter: 2012Q2

REPORT INFORMATION
  Report Type: 
  Country: None (occurrence: None)
  Receive Date: 20120619
  Receipt Date: 20120611
  Transmission Date: 20120825
  Serious: Yes (Death, Hospitalization)
  Sender: FDA-Public Use
  Company Number: JP-GENZYME-THYM-1003003

PATIENT
  Sex: Female
  Weight: 54 kg

DRUGS (9)
  1. CYCLOPHOSPHAMIDE MONOHYDRATE [Suspect]
     Indication: APLASTIC ANAEMIA
     Dosage: UNK
     Route: 065
     Dates: start: 20110730, end: 20110802
  2. THYMOGLOBULIN [Suspect]
     Indication: BONE MARROW CONDITIONING REGIMEN
     Dosage: 132.5 MG, QD
     Dates: start: 20110730, end: 20110802
  3. ONDANSETRON [Concomitant]
     Indication: PRODUCT USED FOR UNKNOWN INDICATION
     Dosage: UNK
     Route: 065
  4. METHYLPREDNISOLONE SODIUM SUCCINATE [Concomitant]
     Indication: PRODUCT USED FOR UNKNOWN INDICATION
     Dosage: UNK
     Route: 065
  5. FLUDARABINE PHOSPHATE [Concomitant]
     Indication: PRODUCT USED FOR UNKNOWN INDICATION
     Dosage: UNK
     Route: 065
  6. ACYCLOVIR [Concomitant]
     Indication: PRODUCT USED FOR UNKNOWN INDICATION
     Dosage: UNK
     Route: 065
  7. DALTEPARIN SODIUM [Concomitant]
     Indication: PRODUCT USED FOR UNKNOWN INDICATION
     Dosage: UNK
     Route: 065
  8. MESNA [Concomitant]
     Indication: PRODUCT USED FOR UNKNOWN INDICATION
     Dosage: UNK
     Route: 065
  9. CYCLOPHOSPHAMIDE MONOHYDRATE [Suspect]
     Indication: BONE MARROW CONDITIONING REGIMEN

REACTIONS (5)
  - CARDIAC FAILURE [None]
  - BACTERIAL SEPSIS [None]
  - ENTEROCOCCAL SEPSIS [None]
  - STAPHYLOCOCCAL SEPSIS [None]
  - CANDIDA SEPSIS [None]
